FAERS Safety Report 10013557 (Version 1)
Quarter: 2014Q1

REPORT INFORMATION
  Report Type: Spontaneous
  Country: GB (occurrence: GB)
  Receive Date: 20140315
  Receipt Date: 20140315
  Transmission Date: 20141002
  Serious: Yes (Disabling, Other)
  Sender: FDA-Public Use
  Company Number: GB-ROCHE-1361727

PATIENT
  Age: 47 Year
  Sex: Female
  Weight: 76.4 kg

DRUGS (14)
  1. CAPECITABINE [Suspect]
     Indication: BREAST CANCER METASTATIC
     Route: 048
     Dates: start: 20140108
  2. XGEVA [Suspect]
     Indication: BREAST CANCER METASTATIC
     Route: 058
     Dates: start: 20140108
  3. PARACETAMOL [Concomitant]
  4. CITALOPRAM [Concomitant]
     Route: 065
     Dates: start: 20131223
  5. MATRIFEN [Concomitant]
     Route: 065
     Dates: start: 20131223, end: 20140107
  6. ADCAL-D3 [Concomitant]
     Route: 065
     Dates: start: 20140108
  7. CO-CODAMOL [Concomitant]
     Route: 065
     Dates: start: 20131106
  8. DEXAMETHASONE [Concomitant]
     Route: 065
     Dates: start: 20140115
  9. DIAZEPAM [Concomitant]
     Route: 065
     Dates: start: 20131223
  10. EVOREL CONTI [Concomitant]
     Route: 065
     Dates: start: 20131223
  11. LIDOCAINE [Concomitant]
  12. LORAZEPAM [Concomitant]
  13. OMEPRAZOLE [Concomitant]
  14. SODIUM PICOSULFATE [Concomitant]

REACTIONS (7)
  - Pain [Recovered/Resolved]
  - Asthenia [Recovered/Resolved]
  - Dyskinesia [Recovered/Resolved]
  - Back pain [Recovered/Resolved]
  - Pain in extremity [Recovered/Resolved]
  - Fatigue [Recovered/Resolved]
  - Bone pain [Recovered/Resolved]
